FAERS Safety Report 8584115 (Version 7)
Quarter: 2013Q1

REPORT INFORMATION
  Report Type: Spontaneous
  Country: US (occurrence: US)
  Receive Date: 20120529
  Receipt Date: 20130329
  Transmission Date: 20140127
  Serious: Yes (Hospitalization, Disabling, Other)
  Sender: FDA-Public Use
  Company Number: US-009507513-1205USA04488

PATIENT
  Sex: Female

DRUGS (6)
  1. FOSAMAX [Suspect]
     Indication: OSTEOPOROSIS
     Dosage: 70 MG, QW
     Route: 048
     Dates: start: 200204, end: 20070705
  2. ALENDRONATE SODIUM [Suspect]
     Indication: OSTEOPOROSIS
     Dosage: 70 MG, UNK
     Route: 048
     Dates: start: 20100115
  3. ALENDRONATE SODIUM [Suspect]
     Dosage: 70 MG, QW
     Route: 048
     Dates: start: 20090105
  4. CENTRUM SILVER [Concomitant]
     Dosage: UNK
     Dates: start: 1962
  5. TRAZODONE HYDROCHLORIDE [Concomitant]
     Dosage: 50 MG, HS
  6. PAXIL [Concomitant]
     Dosage: 10 MG, UNK

REACTIONS (34)
  - Femur fracture [Unknown]
  - Open reduction of fracture [Unknown]
  - Femur fracture [Not Recovered/Not Resolved]
  - Intramedullary rod insertion [Not Recovered/Not Resolved]
  - Suicide attempt [Unknown]
  - Stress fracture [Not Recovered/Not Resolved]
  - Low turnover osteopathy [Not Recovered/Not Resolved]
  - Osteoporosis [Not Recovered/Not Resolved]
  - Pneumonia aspiration [Recovering/Resolving]
  - Femur fracture [Not Recovered/Not Resolved]
  - Speech disorder [Unknown]
  - Pulmonary oedema [Unknown]
  - Lung infiltration [Unknown]
  - Hypokalaemia [Unknown]
  - Fall [Unknown]
  - Fall [Unknown]
  - Anxiety [Unknown]
  - Insomnia [Unknown]
  - Psychotic disorder [Unknown]
  - Spinal column stenosis [Unknown]
  - Attention deficit/hyperactivity disorder [Unknown]
  - Fall [Unknown]
  - Substance use [Unknown]
  - Contusion [Not Recovered/Not Resolved]
  - Muscle strain [Not Recovered/Not Resolved]
  - Ligament sprain [Not Recovered/Not Resolved]
  - Fall [Unknown]
  - Scoliosis [Unknown]
  - Intervertebral disc disorder [Unknown]
  - Intervertebral disc degeneration [Unknown]
  - Compression fracture [Not Recovered/Not Resolved]
  - Chronic obstructive pulmonary disease [Unknown]
  - Oedema peripheral [Unknown]
  - Arthralgia [Unknown]
